FAERS Safety Report 14585918 (Version 2)
Quarter: 2018Q1

REPORT INFORMATION
  Report Type: Report from Study
  Country: US (occurrence: US)
  Receive Date: 20180301
  Receipt Date: 20180328
  Transmission Date: 20180509
  Serious: Yes (Hospitalization, Other)
  Sender: FDA-Public Use
  Company Number: US-009507513-1704USA014922

PATIENT
  Age: 80 Year
  Sex: Male
  Weight: 71.5 kg

DRUGS (12)
  1. ASPIRIN. [Suspect]
     Active Substance: ASPIRIN
     Dosage: TOOK TWO 81 MG TABLETS
     Route: 048
     Dates: start: 20170429
  2. PEMBROLIZUMAB. [Suspect]
     Active Substance: PEMBROLIZUMAB
     Dosage: 2 MG/KG (200 MG), STRENGTH: 200 MG, CYCLE 3, 4 OF 8 CYCLES
     Route: 042
     Dates: start: 20170929
  3. OXYGEN. [Concomitant]
     Active Substance: OXYGEN
     Dosage: 2 L, FREQUENCY: UNKNOWN
  4. REMERON [Concomitant]
     Active Substance: MIRTAZAPINE
     Dosage: 30 MG, UNK
     Route: 048
  5. PEMBROLIZUMAB. [Suspect]
     Active Substance: PEMBROLIZUMAB
     Indication: NON-SMALL CELL LUNG CANCER
     Dosage: 200 MG (STRENGTH: 100 MG), Q3W
     Route: 042
     Dates: start: 20170321, end: 2017
  6. PEMBROLIZUMAB. [Suspect]
     Active Substance: PEMBROLIZUMAB
     Dosage: 2 MG/KG (142.5 MG), STRENGTH: 100 MG, Q3W
     Route: 042
     Dates: start: 2017, end: 2017
  7. INDOCIN (INDOMETHACIN) [Concomitant]
     Dosage: 25 MG, BID
     Route: 048
  8. PEMBROLIZUMAB. [Suspect]
     Active Substance: PEMBROLIZUMAB
     Dosage: 2 MG/KG (200 MG), STRENGTH: 100 MG, Q3W
     Route: 042
     Dates: start: 20170728, end: 20170728
  9. ATORVASTATIN [Concomitant]
     Active Substance: ATORVASTATIN
     Dosage: UNK
  10. ASPIRIN. [Suspect]
     Active Substance: ASPIRIN
     Indication: HEADACHE
     Dosage: TOOK TWO 81 TABLETS (162 MG), ONCE
     Route: 048
     Dates: start: 20170429, end: 20170429
  11. XGEVA [Concomitant]
     Active Substance: DENOSUMAB
     Indication: CHEMOTHERAPY
     Dosage: 120 MG, ONCE, EVERY SIX WEEK
     Route: 058
     Dates: end: 20171020
  12. XGEVA [Concomitant]
     Active Substance: DENOSUMAB
     Dosage: 120 MG, ONCE, 1 OF 1 CYCLE
     Route: 058

REACTIONS (36)
  - Oxygen saturation decreased [Unknown]
  - Neck pain [Unknown]
  - Psoriasis [Unknown]
  - Atrioventricular block [Recovered/Resolved]
  - Snoring [Unknown]
  - Arthritis [Unknown]
  - Motor dysfunction [Recovering/Resolving]
  - Sensitivity to weather change [Unknown]
  - Muscular weakness [Recovering/Resolving]
  - Headache [Recovered/Resolved]
  - Arthralgia [Recovering/Resolving]
  - Chest discomfort [Unknown]
  - Cough [Not Recovered/Not Resolved]
  - Joint swelling [Recovering/Resolving]
  - Chest discomfort [Recovered/Resolved]
  - Dermatitis psoriasiform [Recovering/Resolving]
  - Lymphadenopathy [Unknown]
  - Pain in extremity [Unknown]
  - Diarrhoea [Recovered/Resolved]
  - Cellulitis [Unknown]
  - Somnolence [Unknown]
  - Weight increased [Unknown]
  - Joint swelling [Recovering/Resolving]
  - Headache [Recovered/Resolved]
  - Faeces discoloured [Recovered/Resolved]
  - Muscular weakness [Unknown]
  - Phlebitis [Unknown]
  - Lymphoedema [Unknown]
  - Peripheral swelling [Unknown]
  - Fatigue [Recovered/Resolved]
  - Pain in extremity [Unknown]
  - Fungal infection [Recovering/Resolving]
  - Hypoaesthesia [Unknown]
  - Drug ineffective [Unknown]
  - Paraesthesia [Recovered/Resolved]
  - Dyspnoea [Unknown]

NARRATIVE: CASE EVENT DATE: 2017
